FAERS Safety Report 5356373-9 (Version None)
Quarter: 2007Q2

REPORT INFORMATION
  Report Type: 
  Country: None (occurrence: None)
  Receive Date: 20070613
  Receipt Date: 20070601
  Transmission Date: 20071010
  Serious: Yes (Hospitalization)
  Sender: FDA-Public Use
  Company Number: FR-PFIZER INC-2007047141

PATIENT
  Sex: Female

DRUGS (3)
  1. SU-011,248 [Suspect]
     Indication: METASTATIC RENAL CELL CARCINOMA
     Route: 048
     Dates: start: 20060309, end: 20060906
  2. SU-011,248 [Suspect]
     Route: 048
     Dates: start: 20061019, end: 20061115
  3. SU-011,248 [Suspect]
     Route: 048
     Dates: start: 20061130, end: 20070520

REACTIONS (5)
  - ANAEMIA [None]
  - ASTHENIA [None]
  - COLITIS [None]
  - OESOPHAGITIS [None]
  - RECTAL HAEMORRHAGE [None]
